FAERS Safety Report 21469647 (Version 1)
Quarter: 2022Q4

REPORT INFORMATION
  Report Type: Spontaneous
  Country: US (occurrence: US)
  Receive Date: 20221018
  Receipt Date: 20221018
  Transmission Date: 20230113
  Serious: No
  Sender: FDA-Public Use
  Company Number: US-ADAMAS PHARMA, LLC-2021ADA03024

PATIENT
  Sex: Male

DRUGS (22)
  1. GOCOVRI [Suspect]
     Active Substance: AMANTADINE
     Indication: Dyskinesia
     Dosage: 137 MG, 1X/DAY AT BEDTIME
     Route: 048
     Dates: start: 20210818
  2. AMANTADINE [Concomitant]
     Active Substance: AMANTADINE
  3. ASPIRIN [Concomitant]
     Active Substance: ASPIRIN
  4. CARBIDOPA\LEVODOPA [Concomitant]
     Active Substance: CARBIDOPA\LEVODOPA
  5. CENTRUM SILVER 50+ MEN [Concomitant]
  6. CIALIS [Concomitant]
     Active Substance: TADALAFIL
  7. COENZYME Q10 [Concomitant]
     Active Substance: DIETARY SUPPLEMENT\UBIDECARENONE
  8. COLACE [Concomitant]
     Active Substance: DOCUSATE SODIUM
  9. COMTAN [Concomitant]
     Active Substance: ENTACAPONE
  10. CRESTOR [Concomitant]
     Active Substance: ROSUVASTATIN CALCIUM
  11. ISRADIPINE [Concomitant]
     Active Substance: ISRADIPINE
  12. KLONOPIN [Concomitant]
     Active Substance: CLONAZEPAM
  13. KRILL OIL [Concomitant]
     Active Substance: DIETARY SUPPLEMENT\KRILL OIL
  14. LEXAPRO [Concomitant]
     Active Substance: ESCITALOPRAM OXALATE
  15. HYDROCHLOROTHIAZIDE\LOSARTAN [Concomitant]
     Active Substance: HYDROCHLOROTHIAZIDE\LOSARTAN
  16. MAGNESIUM [Concomitant]
     Active Substance: MAGNESIUM
  17. OXYBUTYNIN [Concomitant]
     Active Substance: OXYBUTYNIN
  18. PEPCID [Concomitant]
     Active Substance: FAMOTIDINE
  19. POTASSIUM [Concomitant]
     Active Substance: POTASSIUM
  20. REMERON [Concomitant]
     Active Substance: MIRTAZAPINE
  21. VIAGRA [Concomitant]
     Active Substance: SILDENAFIL CITRATE
  22. VITAMIN D3 [Concomitant]
     Active Substance: CHOLECALCIFEROL

REACTIONS (1)
  - Decreased appetite [Not Recovered/Not Resolved]

NARRATIVE: CASE EVENT DATE: 20210101
